FAERS Safety Report 12904645 (Version 2)
Quarter: 2016Q4

REPORT INFORMATION
  Report Type: Report from Study
  Country: CA (occurrence: CA)
  Receive Date: 20161102
  Receipt Date: 20161216
  Transmission Date: 20170207
  Serious: Yes (Other)
  Sender: FDA-Public Use
  Company Number: CA-HLSUS-2016-CA-000560

PATIENT
  Age: 32 Year
  Sex: Male
  Weight: 62 kg

DRUGS (15)
  1. GLYCERINE [Concomitant]
     Active Substance: GLYCERIN
     Indication: CONSTIPATION
     Dosage: 2.67G PER OS AT EACH 4-6 HOURS
     Dates: start: 20160429
  2. ABILIFY [Concomitant]
     Active Substance: ARIPIPRAZOLE
     Indication: SCHIZOPHRENIA
     Dosage: 5MG PER OS ONCE PER DAY
     Route: 048
     Dates: start: 20161004
  3. GRAVOL [Concomitant]
     Active Substance: DIMENHYDRINATE
     Indication: NAUSEA
     Dosage: 100MG INTRA-RECTAL AT EACH 4HR
     Dates: start: 20161031
  4. COLACE [Concomitant]
     Active Substance: DOCUSATE SODIUM
     Indication: CONSTIPATION
     Dosage: 200MG PER OS AT BEDTIME
     Dates: start: 20160429
  5. ZYPREXA [Concomitant]
     Active Substance: OLANZAPINE
     Indication: AGITATION
     Dosage: 5MG OS ONCE PER DAY
     Route: 048
     Dates: start: 20160429
  6. CLOZARIL [Suspect]
     Active Substance: CLOZAPINE
     Indication: SCHIZOPHRENIA
     Route: 048
     Dates: start: 20061222
  7. ACETAMINOPHENE 500 MG /CO [Concomitant]
     Indication: PAIN
     Dosage: 500 TO 1000MG 1 TO2 TAB PER OS
     Route: 048
     Dates: start: 20161027
  8. FLEET ENEMA [Concomitant]
     Active Substance: SODIUM PHOSPHATE, DIBASIC\SODIUM PHOSPHATE, MONOBASIC
     Indication: CONSTIPATION
     Dosage: 133ML  INTRA-RECTAL IF CONSTIP
     Dates: start: 20160429
  9. TENORMIN [Concomitant]
     Active Substance: ATENOLOL
     Dosage: 25 TO 50MG PER OS ONCE PER DAY
     Route: 048
     Dates: start: 20161007
  10. BENADRYL [Concomitant]
     Active Substance: DIPHENHYDRAMINE HYDROCHLORIDE
     Indication: AGITATION
     Dosage: 25MG OS AT EACH4-6HR IF AGITAT
     Route: 048
     Dates: start: 20160429
  11. POLYETHYLENE GLYCOL [Concomitant]
     Active Substance: POLYETHYLENE GLYCOLS
     Indication: CONSTIPATION
     Dosage: 17G OS ONCE PER DAY
     Route: 048
     Dates: start: 20160929
  12. EMOLLIENT BASE CR [Concomitant]
     Dosage: 1 TOPIC4 TIME PER DAY
     Route: 061
     Dates: start: 20160429
  13. HALDOL [Concomitant]
     Active Substance: HALOPERIDOL
     Indication: AGITATION
     Dosage: 6MG OS AT EACH 6 HRS
     Route: 048
     Dates: start: 20160429
  14. ATROPINE 1 % SOL OPHT [Concomitant]
     Dosage: 2DROPS UNDER THETONGUETWICEDAY
     Route: 060
     Dates: start: 20160429
  15. GRAVOL [Concomitant]
     Active Substance: DIMENHYDRINATE
     Indication: NAUSEA
     Dosage: 50MG INTRA-RECTAL AT EACH 4HR
     Dates: start: 20161031

REACTIONS (2)
  - Retroperitoneal mass [Unknown]
  - Seminoma [Unknown]

NARRATIVE: CASE EVENT DATE: 201610
